FAERS Safety Report 5403962-9 (Version None)
Quarter: 2007Q3

REPORT INFORMATION
  Report Type: 
  Country: None (occurrence: None)
  Receive Date: 20070802
  Receipt Date: 20070730
  Transmission Date: 20080115
  Serious: Yes (Death)
  Sender: FDA-Public Use
  Company Number: A0666777A

PATIENT
  Age: 62 Year
  Sex: Female

DRUGS (4)
  1. AVANDIA [Suspect]
     Dosage: 8MG PER DAY
     Route: 048
  2. INSULIN [Concomitant]
  3. HEART MEDICATION [Concomitant]
  4. CONCURRENT MEDICATIONS [Concomitant]

REACTIONS (2)
  - MYOCARDIAL INFARCTION [None]
  - WHEEZING [None]
